FAERS Safety Report 8170381-4 (Version None)
Quarter: 2012Q1

REPORT INFORMATION
  Report Type: 
  Country: None (occurrence: None)
  Receive Date: 20120228
  Receipt Date: 20120214
  Transmission Date: 20120608
  Serious: Yes (Hospitalization, Other)
  Sender: FDA-Public Use
  Company Number: US-ELI_LILLY_AND_COMPANY-US201202002781

PATIENT
  Sex: Female

DRUGS (6)
  1. CLONIDINE [Concomitant]
  2. POLYETHYLENE GLYCOL [Concomitant]
  3. STRATTERA [Suspect]
     Dosage: UNK, UNKNOWN
  4. OXYBUTYNIN CHLORIDE [Concomitant]
  5. LITHIUM [Concomitant]
  6. ZYPREXA [Suspect]
     Indication: AGGRESSION
     Dosage: 20 MG, UNK
     Dates: start: 20010101

REACTIONS (20)
  - CONVULSION [None]
  - HALLUCINATION, AUDITORY [None]
  - ASTHMA [None]
  - SUICIDE ATTEMPT [None]
  - AGGRESSION [None]
  - SELF INJURIOUS BEHAVIOUR [None]
  - AMNESIA [None]
  - SUICIDAL IDEATION [None]
  - HALLUCINATION, VISUAL [None]
  - READING DISORDER [None]
  - TONSILLECTOMY [None]
  - CHEST PAIN [None]
  - MOOD SWINGS [None]
  - AFFECTIVE DISORDER [None]
  - LIBIDO INCREASED [None]
  - DEVELOPMENTAL DELAY [None]
  - SURGERY [None]
  - DELUSION [None]
  - SPEECH DISORDER [None]
  - OFF LABEL USE [None]
